FAERS Safety Report 4676277-4 (Version None)
Quarter: 2005Q2

REPORT INFORMATION
  Report Type: 
  Country: None (occurrence: None)
  Receive Date: 20050527
  Receipt Date: 20050214
  Transmission Date: 20051028
  Serious: No
  Sender: FDA-Public Use
  Company Number: US-GLAXOSMITHKLINE-A0545448A

PATIENT
  Age: 83 Year
  Sex: Male

DRUGS (9)
  1. WELLBUTRIN XL [Suspect]
     Dosage: 150MG PER DAY
     Route: 048
     Dates: start: 20050207
  2. LIPRAM [Concomitant]
  3. ZOCOR [Concomitant]
  4. SURFAK [Concomitant]
  5. BEXTRA [Concomitant]
  6. NORVASC [Concomitant]
  7. PROTONIX [Concomitant]
  8. DOXAZOSIN [Concomitant]
  9. ANTACID TAB [Concomitant]

REACTIONS (2)
  - DRY MOUTH [None]
  - DYSPEPSIA [None]
